FAERS Safety Report 9331506 (Version 1)
Quarter: 2013Q2

REPORT INFORMATION
  Report Type: Spontaneous
  Country: US (occurrence: None)
  Receive Date: 20130603
  Receipt Date: 20130603
  Transmission Date: 20140414
  Serious: Yes (Death)
  Sender: FDA-Public Use
  Company Number: UTC-033466

PATIENT
  Age: 58 Year
  Sex: Male
  Weight: 118.6 kg

DRUGS (2)
  1. TYVASO [Suspect]
     Indication: PULMONARY ARTERIAL HYPERTENSION
     Route: 055
     Dates: start: 20130327, end: 2013
  2. ADCIRCA [Concomitant]

REACTIONS (1)
  - Death [None]
